FAERS Safety Report 7854729-3 (Version None)
Quarter: 2011Q4

REPORT INFORMATION
  Report Type: 
  Country: None (occurrence: None)
  Receive Date: 20111026
  Receipt Date: 20110729
  Transmission Date: 20120403
  Serious: No
  Sender: FDA-Public Use
  Company Number: US-MUTUAL PHARMACEUTICAL COMPANY, INC.-CLCY20110096

PATIENT
  Sex: Male
  Weight: 86.26 kg

DRUGS (7)
  1. FIORICET [Concomitant]
     Indication: HEADACHE
     Route: 048
     Dates: start: 19910101
  2. NIASPAN [Concomitant]
     Indication: BLOOD CHOLESTEROL INCREASED
     Route: 048
     Dates: start: 20110621
  3. CLONAZEPAM [Concomitant]
     Indication: ANXIETY
     Route: 048
     Dates: start: 19930101
  4. COLCRYS [Suspect]
     Route: 048
     Dates: start: 20110727, end: 20110730
  5. TOPROL-XL [Concomitant]
     Indication: CARDIAC DISORDER
     Route: 048
     Dates: start: 20000101
  6. ZOLOFT [Concomitant]
     Indication: DEPRESSION
     Route: 048
     Dates: start: 20000101
  7. ASPIRIN [Concomitant]
     Indication: CARDIOVASCULAR EVENT PROPHYLAXIS
     Route: 048
     Dates: start: 20000101

REACTIONS (2)
  - OFF LABEL USE [None]
  - URTICARIA [None]
